FAERS Safety Report 4865658-1 (Version None)
Quarter: 2005Q4

REPORT INFORMATION
  Report Type: 
  Country: None (occurrence: None)
  Receive Date: 20051220
  Receipt Date: 20051208
  Transmission Date: 20060501
  Serious: Yes (Death, Hospitalization, Other)
  Sender: FDA-Public Use
  Company Number: 2005145616

PATIENT
  Age: 77 Year
  Sex: Female
  Weight: 72.5755 kg

DRUGS (6)
  1. NEURONTIN [Suspect]
     Indication: PAIN
     Dosage: 1800 MG (600 MG, 3 IN 1 D)
     Dates: start: 20050801, end: 20051014
  2. TAXOTERE [Suspect]
     Indication: BREAST CANCER
     Dosage: INTRAVENOUS
     Route: 042
     Dates: start: 20050930, end: 20051014
  3. TOBRAMYCIN [Suspect]
     Indication: PYREXIA
     Dosage: INTRAVENOUS
     Route: 042
     Dates: start: 20051006, end: 20051014
  4. VANCOMYCIN [Suspect]
     Indication: PYREXIA
     Dosage: INTRAVENOUS
     Route: 042
     Dates: start: 20051006, end: 20051014
  5. ADRIAMYCIN PFS [Concomitant]
  6. CYTOXAN [Concomitant]

REACTIONS (16)
  - ASTHENIA [None]
  - BACK PAIN [None]
  - BONE PAIN [None]
  - COMA [None]
  - DIALYSIS [None]
  - DRUG LEVEL INCREASED [None]
  - FLUID RETENTION [None]
  - HAEMODIALYSIS [None]
  - HYPOVOLAEMIA [None]
  - LETHARGY [None]
  - LOSS OF CONSCIOUSNESS [None]
  - MULTI-ORGAN FAILURE [None]
  - MYOCLONUS [None]
  - PYREXIA [None]
  - RENAL FAILURE [None]
  - SEDATION [None]
